FAERS Safety Report 23213016 (Version 1)
Quarter: 2023Q4

REPORT INFORMATION
  Report Type: Spontaneous
  Country: US (occurrence: US)
  Receive Date: 20231121
  Receipt Date: 20231121
  Transmission Date: 20240110
  Serious: Yes (Death)
  Sender: FDA-Public Use
  Company Number: US-ENDO-CASE-0045224

PATIENT
  Sex: Male

DRUGS (5)
  1. ENDODAN [Suspect]
     Active Substance: ASPIRIN\OXYCODONE HYDROCHLORIDE
  2. PERCOCET [Suspect]
     Active Substance: ACETAMINOPHEN\OXYCODONE HYDROCHLORIDE
  3. OXYCODONE [Suspect]
     Active Substance: OXYCODONE
  4. ROXICODONE [Suspect]
     Active Substance: OXYCODONE HYDROCHLORIDE
  5. XANAX [Suspect]
     Active Substance: ALPRAZOLAM

REACTIONS (1)
  - Death [Fatal]
